FAERS Safety Report 19444800 (Version 1)
Quarter: 2021Q2

REPORT INFORMATION
  Report Type: Spontaneous
  Country: GB (occurrence: GB)
  Receive Date: 20210621
  Receipt Date: 20210621
  Transmission Date: 20210717
  Serious: Yes (Disabling)
  Sender: FDA-Public Use
  Company Number: GB-MYLANLABS-2021M1036141

PATIENT
  Age: 86 Year
  Sex: Male
  Weight: 75 kg

DRUGS (8)
  1. FINASTERIDE. [Concomitant]
     Active Substance: FINASTERIDE
     Indication: ILL-DEFINED DISORDER
     Dosage: UNK UNK, QD (ONE EVERY DAY)
     Dates: start: 20210309
  2. COLCHICINE. [Concomitant]
     Active Substance: COLCHICINE
     Indication: ILL-DEFINED DISORDER
     Dosage: UNK UNK, PRN (ONE TO BE TAKEN ONE TO FOUR TIMES DAILY UNTIL S
     Dates: start: 20210419, end: 20210424
  3. CETIRIZINE [Concomitant]
     Active Substance: CETIRIZINE HYDROCHLORIDE
     Indication: ILL-DEFINED DISORDER
     Dosage: UNK UNK, QD (TAKE ONE DAILY)
     Dates: start: 20210616
  4. FEXOFENADINE [Suspect]
     Active Substance: FEXOFENADINE HYDROCHLORIDE
     Dosage: UNK
     Dates: start: 20210616
  5. FLUTICASONE FUROATE [Concomitant]
     Active Substance: FLUTICASONE FUROATE
     Indication: ILL-DEFINED DISORDER
     Dosage: UNK UNK, QD (USE ONE OR TWO SPRAYS ONCE A DAY INTO EACH NOSTRIL)
     Dates: start: 20210309
  6. FEXOFENADINE [Suspect]
     Active Substance: FEXOFENADINE HYDROCHLORIDE
     Indication: ILL-DEFINED DISORDER
     Dosage: UNK
     Route: 048
     Dates: start: 20210602
  7. GAVISCON ADVANCE                   /01340901/ [Concomitant]
     Indication: ILL-DEFINED DISORDER
     Dosage: UNK (TAKE 5?10ML AFTER MEALS AND AT BEDTIME)
     Dates: start: 20210309
  8. OMEPRAZOLE. [Concomitant]
     Active Substance: OMEPRAZOLE
     Indication: ILL-DEFINED DISORDER
     Dosage: UNK UNK, QD (ONE DAILY)
     Dates: start: 20210309

REACTIONS (2)
  - Chest discomfort [Recovered/Resolved]
  - Swelling [Recovered/Resolved]

NARRATIVE: CASE EVENT DATE: 20210602
